FAERS Safety Report 15662971 (Version 2)
Quarter: 2018Q4

REPORT INFORMATION
  Report Type: Report from Study
  Country: US (occurrence: US)
  Receive Date: 20181127
  Receipt Date: 20181207
  Transmission Date: 20190205
  Serious: No
  Sender: FDA-Public Use
  Company Number: US-SA-2018SA321433

PATIENT
  Age: 72 Year
  Sex: Female

DRUGS (2)
  1. ALIROCUMAB [Suspect]
     Active Substance: ALIROCUMAB
     Indication: ARTERIOSCLEROSIS
  2. ALIROCUMAB [Suspect]
     Active Substance: ALIROCUMAB
     Indication: BLOOD CHOLESTEROL
     Dosage: 150 MG, QOW
     Route: 058
     Dates: start: 20181106

REACTIONS (15)
  - Myalgia [Unknown]
  - Injection site rash [Unknown]
  - Injection site erythema [Unknown]
  - Headache [Unknown]
  - Abdominal pain upper [Unknown]
  - Bone pain [Unknown]
  - Eye pruritus [Unknown]
  - Cough [Recovering/Resolving]
  - Peripheral swelling [Recovering/Resolving]
  - Pruritus generalised [Unknown]
  - Eye swelling [Unknown]
  - Ocular hyperaemia [Unknown]
  - Chest pain [Unknown]
  - Injection site mass [Unknown]
  - Diarrhoea [Unknown]

NARRATIVE: CASE EVENT DATE: 20181106
